FAERS Safety Report 22036707 (Version 8)
Quarter: 2024Q1

REPORT INFORMATION
  Report Type: Report from Study
  Country: CO (occurrence: CO)
  Receive Date: 20230225
  Receipt Date: 20240216
  Transmission Date: 20240410
  Serious: Yes (Life-Threatening, Hospitalization)
  Sender: FDA-Public Use
  Company Number: CO-002147023-NVSC2023CO040496

PATIENT
  Age: 85 Year
  Sex: Female
  Weight: 57 kg

DRUGS (4)
  1. COSENTYX [Suspect]
     Active Substance: SECUKINUMAB
     Indication: Psoriasis
     Dosage: 300 MG, QMO
     Route: 058
     Dates: start: 20170518
  2. COSENTYX [Suspect]
     Active Substance: SECUKINUMAB
     Dosage: UNK
     Route: 065
     Dates: start: 20190201
  3. COSENTYX [Suspect]
     Active Substance: SECUKINUMAB
     Dosage: 300 MG, QMO
     Route: 058
     Dates: start: 20200312
  4. COSENTYX [Suspect]
     Active Substance: SECUKINUMAB
     Dosage: 300 MG, QMO
     Route: 058
     Dates: start: 20220212

REACTIONS (11)
  - Haematological infection [Unknown]
  - Kidney infection [Unknown]
  - Thrombosis [Recovering/Resolving]
  - Haematoma [Recovering/Resolving]
  - Pain in extremity [Recovering/Resolving]
  - Sensory loss [Recovering/Resolving]
  - Peripheral coldness [Recovering/Resolving]
  - Hypoaesthesia [Recovering/Resolving]
  - Pyrexia [Unknown]
  - Arthralgia [Unknown]
  - Hypoacusis [Unknown]

NARRATIVE: CASE EVENT DATE: 20230131
